FAERS Safety Report 20736031 (Version 1)
Quarter: 2022Q2

REPORT INFORMATION
  Report Type: Report from Study
  Country: BR (occurrence: BR)
  Receive Date: 20220421
  Receipt Date: 20220421
  Transmission Date: 20220720
  Serious: Yes (Disabling, Other)
  Sender: FDA-Public Use
  Company Number: BR-JNJFOC-20220354996

PATIENT
  Sex: Female
  Weight: 61.7 kg

DRUGS (2)
  1. AMIVANTAMAB [Suspect]
     Active Substance: AMIVANTAMAB
     Indication: Non-small cell lung cancer metastatic
     Route: 042
     Dates: start: 20210701, end: 202112
  2. AMIVANTAMAB [Suspect]
     Active Substance: AMIVANTAMAB
     Dosage: IN DEC 2021 (7TH CYCLE), DOSAGE WAS REDUCED DUE TO SKIN RASH AND HAIR LOSS; RECEIVED 9 CYCLES
     Route: 042
     Dates: start: 202112, end: 20220214

REACTIONS (3)
  - Alopecia [Recovering/Resolving]
  - Disease progression [Unknown]
  - Rash [Recovering/Resolving]

NARRATIVE: CASE EVENT DATE: 20220201
